FAERS Safety Report 7596404-9 (Version None)
Quarter: 2011Q3

REPORT INFORMATION
  Report Type: 
  Country: None (occurrence: None)
  Receive Date: 20110707
  Receipt Date: 20110630
  Transmission Date: 20111222
  Serious: Yes (Hospitalization)
  Sender: FDA-Public Use
  Company Number: CA-B.I. PHARMACEUTICALS,INC./RIDGEFIELD-2011-CN-00872CN

PATIENT
  Age: 78 Year
  Sex: Male

DRUGS (5)
  1. PRADAXA [Suspect]
     Indication: ATRIAL FIBRILLATION
     Dosage: 220 MG
     Dates: start: 20110201, end: 20110301
  2. BISOPROLOL FUMARATE [Concomitant]
     Dosage: 10 MG
  3. ASPIRIN [Concomitant]
  4. FUROSEMIDE [Concomitant]
     Dosage: 80 MG
  5. RAMIPRIL [Concomitant]
     Dosage: 5 MG

REACTIONS (3)
  - MYOCARDIAL INFARCTION [None]
  - ASTHENIA [None]
  - SMALL INTESTINAL HAEMORRHAGE [None]
